FAERS Safety Report 7299168-1 (Version None)
Quarter: 2011Q1

REPORT INFORMATION
  Report Type: 
  Country: None (occurrence: None)
  Receive Date: 20110217
  Receipt Date: 20110214
  Transmission Date: 20110831
  Serious: Yes (Other)
  Sender: FDA-Public Use
  Company Number: US-JNJFOC-20110204581

PATIENT
  Age: 53 Year
  Sex: Male
  Weight: 77.11 kg

DRUGS (3)
  1. EXTRA STRENGTH TYLENOL [Suspect]
     Indication: HEADACHE
     Route: 048
  2. ALBUTEROL [Concomitant]
  3. EXTRA STRENGTH TYLENOL [Suspect]
     Route: 048

REACTIONS (2)
  - COUGH [None]
  - DYSPNOEA [None]
